FAERS Safety Report 23168483 (Version 4)
Quarter: 2024Q1

REPORT INFORMATION
  Report Type: Report from Study
  Country: US (occurrence: US)
  Receive Date: 20231110
  Receipt Date: 20240112
  Transmission Date: 20240409
  Serious: Yes (Other)
  Sender: FDA-Public Use
  Company Number: US-ABBVIE-5395930

PATIENT
  Sex: Male
  Weight: 74 kg

DRUGS (2)
  1. SKYRIZI [Suspect]
     Active Substance: RISANKIZUMAB-RZAA
     Indication: Psoriasis
     Route: 058
     Dates: start: 20221213
  2. BETAMETHASONE\CALCIPOTRIENE [Concomitant]
     Active Substance: BETAMETHASONE\CALCIPOTRIENE
     Indication: Product used for unknown indication
     Dosage: OCCASIONAL

REACTIONS (7)
  - Pruritus [Not Recovered/Not Resolved]
  - Unevaluable event [Unknown]
  - Secretion discharge [Unknown]
  - Pain [Not Recovered/Not Resolved]
  - Urticaria [Unknown]
  - Skin fissures [Unknown]
  - Skin exfoliation [Unknown]
